FAERS Safety Report 4508967-8 (Version None)
Quarter: 2004Q4

REPORT INFORMATION
  Report Type: 
  Country: None (occurrence: None)
  Receive Date: 20041122
  Receipt Date: 20041122
  Transmission Date: 20050328
  Serious: Yes (Hospitalization)
  Sender: FDA-Public Use
  Company Number: None

PATIENT
  Sex: Female
  Weight: 47.1741 kg

DRUGS (1)
  1. WELLBUTRIN [Suspect]
     Indication: DEPRESSION
     Dosage: 200 MG TWICE DAILY ORAL
     Route: 048
     Dates: start: 20030601, end: 20041008

REACTIONS (1)
  - GRAND MAL CONVULSION [None]
